FAERS Safety Report 24740751 (Version 2)
Quarter: 2025Q1

REPORT INFORMATION
  Report Type: Spontaneous
  Country: MX (occurrence: MX)
  Receive Date: 20241217
  Receipt Date: 20250203
  Transmission Date: 20250409
  Serious: Yes (Other)
  Sender: NOVO NORDISK
  Company Number: MX-NOVOPROD-1334825

PATIENT
  Age: 80 Year
  Sex: Male
  Weight: 65 kg

DRUGS (2)
  1. NOVORAPID [Suspect]
     Active Substance: INSULIN ASPART
     Indication: Type 2 diabetes mellitus
     Dosage: 8 IU, BID (IN THE MORNING AND AFTERNOON)
  2. LANTUS [Concomitant]
     Active Substance: INSULIN GLARGINE
     Dosage: 20 IU, QD (IN THE MORNING)

REACTIONS (3)
  - Blood glucose increased [Not Recovered/Not Resolved]
  - Device delivery system issue [Unknown]
  - Device issue [Unknown]

NARRATIVE: CASE EVENT DATE: 20241101
